FAERS Safety Report 21574904 (Version 1)
Quarter: 2022Q4

REPORT INFORMATION
  Report Type: Spontaneous
  Country: US (occurrence: US)
  Receive Date: 20221110
  Receipt Date: 20221110
  Transmission Date: 20230112
  Serious: Yes (Congenital Anomaly, Other)
  Sender: FDA-Public Use
  Company Number: US-SPECGX-T202202272

PATIENT

DRUGS (1)
  1. METHADONE [Suspect]
     Active Substance: METHADONE HYDROCHLORIDE
     Indication: Product used for unknown indication
     Dosage: UNK
     Route: 064

REACTIONS (10)
  - Cleft palate [Unknown]
  - Williams syndrome [Unknown]
  - Congenital inguinal hernia [Unknown]
  - Congenital hypothyroidism [Unknown]
  - Congenital epiblepharon [Unknown]
  - Congenital flat feet [Unknown]
  - Hypotonia neonatal [Unknown]
  - Testicular retraction [Unknown]
  - Failure to thrive [Unknown]
  - Foetal exposure during pregnancy [Unknown]
